FAERS Safety Report 24060105 (Version 1)
Quarter: 2024Q3

REPORT INFORMATION
  Report Type: Spontaneous
  Country: US (occurrence: US)
  Receive Date: 20240708
  Receipt Date: 20240708
  Transmission Date: 20241017
  Serious: No
  Sender: LUPIN
  Company Number: US-LUPIN PHARMACEUTICALS INC.-2024-05994

PATIENT

DRUGS (4)
  1. BUPROPION HYDROCHLORIDE [Suspect]
     Active Substance: BUPROPION HYDROCHLORIDE
     Indication: Anxiety
     Dosage: UNK
     Route: 065
  2. BUPROPION HYDROCHLORIDE [Suspect]
     Active Substance: BUPROPION HYDROCHLORIDE
     Indication: Depression
  3. BUPROPION HYDROCHLORIDE [Suspect]
     Active Substance: BUPROPION HYDROCHLORIDE
     Indication: Attention deficit hyperactivity disorder
  4. SPRAVATO [Concomitant]
     Active Substance: ESKETAMINE
     Indication: Product used for unknown indication
     Dosage: UNK
     Route: 065

REACTIONS (18)
  - Hyperphagia [Recovered/Resolved]
  - Irritability [Recovered/Resolved]
  - Brain fog [Recovered/Resolved]
  - Apathy [Recovered/Resolved]
  - Crying [Unknown]
  - Migraine [Unknown]
  - Anxiety [Recovering/Resolving]
  - Depression [Recovered/Resolved]
  - Product substitution issue [Unknown]
  - Headache [Unknown]
  - Adverse event [Recovered/Resolved]
  - Feeling abnormal [Recovered/Resolved]
  - Weight increased [Recovering/Resolving]
  - Drug ineffective [Unknown]
  - Alopecia [Recovering/Resolving]
  - Loss of libido [Not Recovered/Not Resolved]
  - Anger [Unknown]
  - Product use in unapproved indication [Unknown]
